FAERS Safety Report 9260153 (Version 1)
Quarter: 2013Q2

REPORT INFORMATION
  Report Type: Spontaneous
  Country: US (occurrence: US)
  Receive Date: 20130429
  Receipt Date: 20130429
  Transmission Date: 20140414
  Serious: Yes (Hospitalization)
  Sender: FDA-Public Use
  Company Number: US-PFIZER INC-2013133022

PATIENT
  Age: 61 Year
  Sex: Male
  Weight: 119 kg

DRUGS (1)
  1. CHANTIX [Suspect]
     Indication: SMOKING CESSATION THERAPY
     Dosage: UNK, 1X/DAY
     Dates: start: 201304, end: 201304

REACTIONS (2)
  - Cerebrovascular accident [Unknown]
  - Asthenia [Unknown]
